FAERS Safety Report 8178091-4 (Version None)
Quarter: 2012Q1

REPORT INFORMATION
  Report Type: 
  Country: None (occurrence: None)
  Receive Date: 20120301
  Receipt Date: 20120224
  Transmission Date: 20120608
  Serious: Yes (Other)
  Sender: FDA-Public Use
  Company Number: US-BAYER-200940674NA

PATIENT
  Age: 54 Year
  Sex: Female
  Weight: 95.238 kg

DRUGS (4)
  1. ANTIHYPERTENSIVES [Concomitant]
     Indication: PRODUCT USED FOR UNKNOWN INDICATION
  2. INSULIN [Concomitant]
     Indication: PRODUCT USED FOR UNKNOWN INDICATION
  3. TRASYLOL [Suspect]
     Indication: CORONARY ARTERY BYPASS
     Dosage: APROTININ 1 MILLION UNITS BILLED.
     Route: 042
     Dates: start: 20030513
  4. TRASYLOL [Suspect]
     Dosage: APROTININ 3 MILLION UNITS BILLED
     Dates: start: 20040514

REACTIONS (12)
  - RENAL IMPAIRMENT [None]
  - RENAL FAILURE [None]
  - ANXIETY [None]
  - PAIN [None]
  - RENAL INJURY [None]
  - STRESS [None]
  - UNEVALUABLE EVENT [None]
  - FEAR [None]
  - ANHEDONIA [None]
  - EMOTIONAL DISTRESS [None]
  - INJURY [None]
  - AMNESIA [None]
